FAERS Safety Report 8841699 (Version 1)
Quarter: 2012Q4

REPORT INFORMATION
  Report Type: Spontaneous
  Country: US (occurrence: None)
  Receive Date: 20121011
  Receipt Date: 20121011
  Transmission Date: 20130627
  Serious: Yes (Death)
  Sender: FDA-Public Use
  Company Number: 1442592

PATIENT
  Age: 65 Year
  Sex: Female

DRUGS (1)
  1. CEFTRIAXONE SODIUM [Suspect]
     Indication: DRUG KNOWN FOR UNKNOWN INDICATION

REACTIONS (6)
  - Thrombocytopenia [None]
  - Petechiae [None]
  - Ecchymosis [None]
  - Drug specific antibody present [None]
  - General physical health deterioration [None]
  - Secretion discharge [None]
